FAERS Safety Report 6831367-2 (Version None)
Quarter: 2010Q3

REPORT INFORMATION
  Report Type: 
  Country: None (occurrence: None)
  Receive Date: 20100712
  Receipt Date: 20100705
  Transmission Date: 20110219
  Serious: Yes (Hospitalization)
  Sender: FDA-Public Use
  Company Number: FR-AMGEN-KDC422181

PATIENT
  Sex: Female
  Weight: 63 kg

DRUGS (10)
  1. VECTIBIX [Suspect]
     Indication: BREAST CANCER
     Dates: start: 20100511
  2. CYCLOPHOSPHAMIDE [Suspect]
     Dates: start: 20100511
  3. FLUOROURACIL [Suspect]
     Dates: start: 20100511
  4. EPIRUBICIN [Suspect]
     Dates: start: 20100511
  5. DOXYCYCLINE [Concomitant]
     Dates: start: 20100512
  6. ZOPHREN [Concomitant]
     Dates: start: 20100511
  7. CETYLPYRIDINIUM CHLORIDE [Concomitant]
     Dates: start: 20100511
  8. CHLOROBUTANOL/POLYVINYL ALCOHOL [Concomitant]
     Dates: start: 20100511
  9. BICARBONATE [Concomitant]
     Dates: start: 20100511
  10. CORTANCYL [Concomitant]
     Dates: start: 20100511

REACTIONS (1)
  - FEBRILE BONE MARROW APLASIA [None]
